FAERS Safety Report 4950904-6 (Version None)
Quarter: 2006Q1

REPORT INFORMATION
  Report Type: 
  Country: None (occurrence: None)
  Receive Date: 20060322
  Receipt Date: 20051206
  Transmission Date: 20060701
  Serious: Yes (Disabling)
  Sender: FDA-Public Use
  Company Number: GB-AVENTIS-200520950GDDC

PATIENT
  Age: 65 Year
  Sex: Female
  Weight: 80 kg

DRUGS (8)
  1. LANTUS [Suspect]
     Dosage: DOSE UNIT: UNITS
     Route: 058
     Dates: start: 20051001, end: 20051201
  2. NOVORAPID [Concomitant]
  3. ATORVASTATIN CALCIUM [Concomitant]
     Indication: BLOOD CHOLESTEROL INCREASED
  4. LOSARTAN POTASSIUM [Concomitant]
     Indication: HYPERTENSION
  5. ENALAPRIL MALEATE [Concomitant]
  6. ATENOLOL [Concomitant]
  7. ASPIRIN [Concomitant]
  8. BENDROFLUAZIDE [Concomitant]

REACTIONS (6)
  - ARTHRALGIA [None]
  - MYALGIA [None]
  - PAIN [None]
  - PROCEDURAL SITE REACTION [None]
  - PRURITUS [None]
  - TENDONITIS [None]
